FAERS Safety Report 9971339 (Version 1)
Quarter: 2014Q1

REPORT INFORMATION
  Report Type: Report from Study
  Country: US (occurrence: US)
  Receive Date: 20140306
  Receipt Date: 20140306
  Transmission Date: 20141002
  Serious: No
  Sender: FDA-Public Use
  Company Number: US-ABBVIE-13P-163-1151842-00

PATIENT
  Age: 40 Year
  Sex: Female

DRUGS (13)
  1. HUMIRA [Suspect]
     Indication: CROHN^S DISEASE
     Dates: start: 20121105, end: 20121105
  2. HUMIRA [Suspect]
  3. OXYCODONE [Concomitant]
     Indication: BREAKTHROUGH PAIN
  4. OXYCODONE [Concomitant]
  5. MIRAPEX [Concomitant]
     Indication: PRODUCT USED FOR UNKNOWN INDICATION
     Dosage: AT BEDTIME
  6. AZATHIORINE [Concomitant]
     Indication: PRODUCT USED FOR UNKNOWN INDICATION
  7. PRILOSEC [Concomitant]
     Indication: DYSPEPSIA
  8. PRILOSEC [Concomitant]
     Indication: ULCER
  9. ADVAIR [Concomitant]
     Indication: CHRONIC OBSTRUCTIVE PULMONARY DISEASE
  10. PRO-AIR [Concomitant]
     Indication: CHRONIC OBSTRUCTIVE PULMONARY DISEASE
  11. TIZANIDINE [Concomitant]
     Indication: MUSCLE RELAXANT THERAPY
     Dosage: 4 MG EVERY 8 HOURS
  12. LYRICA [Concomitant]
     Indication: FIBROMYALGIA
  13. ALBUTEROL [Concomitant]
     Indication: CHRONIC OBSTRUCTIVE PULMONARY DISEASE

REACTIONS (2)
  - Injection site pain [Recovered/Resolved]
  - Hypoaesthesia [Recovered/Resolved]
